FAERS Safety Report 4535174-5 (Version None)
Quarter: 2004Q4

REPORT INFORMATION
  Report Type: 
  Country: None (occurrence: None)
  Receive Date: 20041222
  Receipt Date: 20040913
  Transmission Date: 20050328
  Serious: No
  Sender: FDA-Public Use
  Company Number: US-BRISTOL-MYERS SQUIBB COMPANY-12700720

PATIENT
  Age: 33 Year
  Sex: Female

DRUGS (2)
  1. DOVONEX [Suspect]
     Indication: PSORIASIS
     Route: 061
     Dates: start: 20040823
  2. ACLOVATE [Concomitant]

REACTIONS (1)
  - DYSGEUSIA [None]
